FAERS Safety Report 8522677-1 (Version None)
Quarter: 2012Q3

REPORT INFORMATION
  Report Type: 
  Country: None (occurrence: None)
  Receive Date: 20120719
  Receipt Date: 20111209
  Transmission Date: 20120928
  Serious: Yes (Other)
  Sender: FDA-Public Use
  Company Number: TH-VIIV HEALTHCARE LIMITED-A0968434B

PATIENT
  Sex: Female

DRUGS (6)
  1. RITONAVIR [Suspect]
     Indication: HIV INFECTION
     Route: 064
  2. EFAVIRENZ [Suspect]
     Indication: HIV INFECTION
     Route: 064
  3. LAMIVUDINE (EPIVIR HBV) [Suspect]
     Indication: HIV INFECTION
     Route: 064
  4. TRUVADA [Suspect]
     Indication: HIV INFECTION
     Route: 064
  5. ALESSE [Concomitant]
     Route: 064
  6. ATAZANAVIR [Suspect]
     Indication: HIV INFECTION
     Route: 064

REACTIONS (3)
  - PREMATURE BABY [None]
  - FOETAL EXPOSURE DURING PREGNANCY [None]
  - JAUNDICE NEONATAL [None]
